FAERS Safety Report 5699211-7 (Version None)
Quarter: 2008Q2

REPORT INFORMATION
  Report Type: 
  Country: None (occurrence: None)
  Receive Date: 20080407
  Receipt Date: 20080407
  Transmission Date: 20081010
  Serious: No
  Sender: FDA-Public Use
  Company Number: None

PATIENT
  Age: 19 Year
  Sex: Female

DRUGS (5)
  1. MINOCYCLINE HCL [Suspect]
     Dates: start: 20040123, end: 20070416
  2. MULTI-VITAMIN [Concomitant]
  3. BIOTIN [Concomitant]
  4. PREDNISONE [Concomitant]
  5. IMURAN [Concomitant]

REACTIONS (9)
  - AUTOIMMUNE HEPATITIS [None]
  - CHRONIC HEPATITIS [None]
  - DIZZINESS [None]
  - DRUG INEFFECTIVE [None]
  - FATIGUE [None]
  - HEPATIC FIBROSIS [None]
  - LIVER INJURY [None]
  - PRURITUS [None]
  - SINUS DISORDER [None]
